FAERS Safety Report 6222577-6 (Version None)
Quarter: 2009Q2

REPORT INFORMATION
  Report Type: 
  Country: None (occurrence: None)
  Receive Date: 20090611
  Receipt Date: 20090428
  Transmission Date: 20091009
  Serious: No
  Sender: FDA-Public Use
  Company Number: US-BAYER-200914879NA

PATIENT
  Age: 30 Year
  Sex: Female
  Weight: 68 kg

DRUGS (4)
  1. OCELLA [Suspect]
     Indication: CONTRACEPTION
     Route: 048
  2. PRILOSEC [Concomitant]
     Indication: GASTROOESOPHAGEAL REFLUX DISEASE
     Dosage: UNIT DOSE: 40 MG
     Route: 048
  3. ALBUTEROL [Concomitant]
     Indication: ASTHMA
  4. STIMATE [Concomitant]
     Indication: VAGINAL HAEMORRHAGE

REACTIONS (3)
  - ASTHMA [None]
  - DYSPNOEA [None]
  - NO ADVERSE EVENT [None]
